FAERS Safety Report 10012885 (Version 3)
Quarter: 2014Q2

REPORT INFORMATION
  Report Type: Spontaneous
  Country: US (occurrence: US)
  Receive Date: 20140314
  Receipt Date: 20140424
  Transmission Date: 20141212
  Serious: No
  Sender: FDA-Public Use
  Company Number: US-PFIZER INC-2014040150

PATIENT
  Age: 76 Year
  Sex: Male

DRUGS (5)
  1. LYRICA [Suspect]
     Dosage: 100 MG, 2X/DAY
     Route: 048
  2. VITAMIN D [Concomitant]
     Dosage: UNK
  3. SLO-NIACIN [Concomitant]
     Dosage: UNK
  4. FISH OIL [Concomitant]
     Dosage: UNK
  5. ASPIRIN [Concomitant]
     Dosage: 81 MG, UNK

REACTIONS (4)
  - Neuropathy peripheral [Unknown]
  - Gait disturbance [Unknown]
  - Fatigue [Unknown]
  - Hypoacusis [Unknown]
